FAERS Safety Report 4447588-2 (Version None)
Quarter: 2004Q3

REPORT INFORMATION
  Report Type: 
  Country: None (occurrence: None)
  Receive Date: 20040823
  Receipt Date: 20040621
  Transmission Date: 20050211
  Serious: No
  Sender: FDA-Public Use
  Company Number: PHEH2004US06709

PATIENT
  Age: 72 Year
  Sex: Female

DRUGS (2)
  1. ZELNORM [Suspect]
     Indication: GASTROOESOPHAGEAL REFLUX DISEASE
     Dosage: 3 MG, BID, ORAL
     Route: 048
     Dates: start: 20040615
  2. FOSAMAX [Concomitant]

REACTIONS (4)
  - ASTHENIA [None]
  - DIARRHOEA [None]
  - NAUSEA [None]
  - VOMITING [None]
